FAERS Safety Report 8123894-5 (Version None)
Quarter: 2012Q1

REPORT INFORMATION
  Report Type: 
  Country: None (occurrence: None)
  Receive Date: 20120209
  Receipt Date: 20120201
  Transmission Date: 20120608
  Serious: No
  Sender: FDA-Public Use
  Company Number: US-BIOGENIDEC-2012BI003890

PATIENT
  Age: 40 Year
  Sex: Female

DRUGS (1)
  1. AVONEX [Suspect]
     Indication: MULTIPLE SCLEROSIS
     Route: 030
     Dates: start: 20111216

REACTIONS (5)
  - BLOOD URINE PRESENT [None]
  - WEIGHT DECREASED [None]
  - ABASIA [None]
  - VOMITING [None]
  - FAECES DISCOLOURED [None]
